FAERS Safety Report 4861576-3 (Version None)
Quarter: 2005Q4

REPORT INFORMATION
  Report Type: 
  Country: None (occurrence: None)
  Receive Date: 20051220
  Receipt Date: 20051209
  Transmission Date: 20060501
  Serious: Yes (Hospitalization)
  Sender: FDA-Public Use
  Company Number: CA-BRISTOL-MYERS SQUIBB COMPANY-13220421

PATIENT
  Age: 83 Year
  Sex: Male

DRUGS (11)
  1. TEQUIN [Suspect]
     Route: 048
  2. ALTACE [Concomitant]
  3. BUSPAR [Concomitant]
  4. CLONAZEPAM [Concomitant]
  5. GLYBURIDE [Concomitant]
  6. L-TRYPTOPHAN [Concomitant]
  7. LASIX [Concomitant]
  8. LEVOTHYROXINE SODIUM [Concomitant]
  9. METOPROLOL [Concomitant]
  10. VALPROIC ACID [Concomitant]
  11. ZOPICLON [Concomitant]

REACTIONS (3)
  - CONVULSION [None]
  - HYPOGLYCAEMIA [None]
  - LOSS OF CONSCIOUSNESS [None]
